FAERS Safety Report 7429671-2 (Version None)
Quarter: 2011Q2

REPORT INFORMATION
  Report Type: 
  Country: None (occurrence: None)
  Receive Date: 20110421
  Receipt Date: 20110412
  Transmission Date: 20111010
  Serious: Yes (Other)
  Sender: FDA-Public Use
  Company Number: BR-JNJFOC-20110406388

PATIENT
  Sex: Female

DRUGS (1)
  1. TYLEX [Suspect]
     Indication: ANALGESIC THERAPY
     Route: 065

REACTIONS (4)
  - SWELLING [None]
  - HYPERSENSITIVITY [None]
  - SKIN BURNING SENSATION [None]
  - DYSPNOEA [None]
